FAERS Safety Report 20230995 (Version 1)
Quarter: 2021Q4

REPORT INFORMATION
  Report Type: Spontaneous
  Country: US (occurrence: US)
  Receive Date: 20211227
  Receipt Date: 20211227
  Transmission Date: 20220303
  Serious: No
  Sender: FDA-Public Use
  Company Number: US-009507513-2112USA002142

PATIENT
  Sex: Male

DRUGS (1)
  1. STROMECTOL [Suspect]
     Active Substance: IVERMECTIN
     Indication: Rosacea
     Dosage: UNK

REACTIONS (3)
  - Product prescribing issue [Unknown]
  - Product availability issue [Unknown]
  - No adverse event [Unknown]
